FAERS Safety Report 15368417 (Version 4)
Quarter: 2019Q1

REPORT INFORMATION
  Report Type: Report from Study
  Country: US (occurrence: US)
  Receive Date: 20180910
  Receipt Date: 20190218
  Transmission Date: 20190417
  Serious: Yes (Other)
  Sender: FDA-Public Use
  Company Number: PHEH2018US037161

PATIENT
  Sex: Male
  Weight: 98.43 kg

DRUGS (1)
  1. ENTRESTO [Suspect]
     Active Substance: SACUBITRIL\VALSARTAN
     Indication: CARDIAC FAILURE
     Dosage: 1 DF, UNK
     Route: 048

REACTIONS (4)
  - Localised infection [Unknown]
  - Hypotension [Recovering/Resolving]
  - Fluid retention [Unknown]
  - Renal impairment [Unknown]
